FAERS Safety Report 8037187-8 (Version None)
Quarter: 2011Q4

REPORT INFORMATION
  Report Type: 
  Country: None (occurrence: None)
  Receive Date: 20111202
  Receipt Date: 20110125
  Transmission Date: 20120403
  Serious: Yes (Hospitalization, Disabling)
  Sender: FDA-Public Use
  Company Number: 2011SP003704

PATIENT
  Age: 24 Year
  Sex: Female
  Weight: 117.9352 kg

DRUGS (2)
  1. NUVARING [Suspect]
     Indication: PREGNANCY
     Dates: start: 20081101, end: 20090201
  2. NUVARING [Suspect]
     Indication: MENSTRUATION IRREGULAR
     Dates: start: 20081101, end: 20090201

REACTIONS (4)
  - DEPRESSION [None]
  - DEEP VEIN THROMBOSIS [None]
  - CHEST PAIN [None]
  - HEADACHE [None]
